FAERS Safety Report 12042335 (Version 3)
Quarter: 2016Q3

REPORT INFORMATION
  Report Type: Report from Study
  Country: US (occurrence: US)
  Receive Date: 20160208
  Receipt Date: 20160812
  Transmission Date: 20161109
  Serious: Yes (Hospitalization)
  Sender: FDA-Public Use
  Company Number: US-GILEAD-2016-0196321

PATIENT
  Age: 71 Year
  Sex: Female

DRUGS (14)
  1. AMBRISENTAN [Suspect]
     Active Substance: AMBRISENTAN
     Indication: PULMONARY ARTERIAL HYPERTENSION
     Dosage: 5 MG, QD
     Route: 065
     Dates: start: 20160109
  2. AMBRISENTAN [Suspect]
     Active Substance: AMBRISENTAN
     Dosage: 10 MG, QD
     Route: 065
     Dates: start: 20160108, end: 201602
  3. VITAMIN D [Concomitant]
     Active Substance: CHOLECALCIFEROL
  4. LASIX [Concomitant]
     Active Substance: FUROSEMIDE
  5. LOPRESSOR [Concomitant]
     Active Substance: METOPROLOL TARTRATE
  6. NORVASC [Concomitant]
     Active Substance: AMLODIPINE BESYLATE
  7. VALCYTE [Concomitant]
     Active Substance: VALGANCICLOVIR HYDROCHLORIDE
  8. ZOCOR [Concomitant]
     Active Substance: SIMVASTATIN
  9. SENSIPAR [Concomitant]
     Active Substance: CINACALCET HYDROCHLORIDE
  10. PROTONIX                           /00661201/ [Concomitant]
     Active Substance: OMEPRAZOLE
  11. GABAPENTIN. [Concomitant]
     Active Substance: GABAPENTIN
  12. ASPIRIN                            /00002701/ [Concomitant]
     Active Substance: ASPIRIN
  13. PROGRAF [Concomitant]
     Active Substance: TACROLIMUS\TACROLIMUS ANHYDROUS
  14. GLIPIZIDE. [Concomitant]
     Active Substance: GLIPIZIDE

REACTIONS (4)
  - Oedema peripheral [Unknown]
  - Renal disorder [Unknown]
  - Unevaluable event [Unknown]
  - Fluid overload [Recovered/Resolved]

NARRATIVE: CASE EVENT DATE: 20160201
